FAERS Safety Report 7951613 (Version 2)
Quarter: 2015Q3

REPORT INFORMATION
  Report Type: Spontaneous
  Country: AU (occurrence: AU)
  Receive Date: 20110519
  Receipt Date: 20150901
  Transmission Date: 20151125
  Serious: Yes (Life-Threatening)
  Sender: FDA-Public Use
  Company Number: AU-PFIZER INC-2011107112

PATIENT
  Age: 60 Year
  Sex: Female
  Weight: 72 kg

DRUGS (3)
  1. CHAMPIX [Suspect]
     Active Substance: VARENICLINE TARTRATE
     Dosage: 1 MG, UNK
     Dates: start: 20110215, end: 20110424
  2. NEXIUM [Concomitant]
     Active Substance: ESOMEPRAZOLE MAGNESIUM
     Dosage: UNK
  3. LEXAPRO [Concomitant]
     Active Substance: ESCITALOPRAM OXALATE
     Dosage: UNK

REACTIONS (2)
  - Psychotic behaviour [Not Recovered/Not Resolved]
  - Suicidal behaviour [Not Recovered/Not Resolved]

NARRATIVE: CASE EVENT DATE: 20110422
